FAERS Safety Report 8600363-7 (Version None)
Quarter: 2012Q3

REPORT INFORMATION
  Report Type: 
  Country: None (occurrence: None)
  Receive Date: 20120817
  Receipt Date: 20120814
  Transmission Date: 20120928
  Serious: No
  Sender: FDA-Public Use
  Company Number: US-PFIZER INC-2012199745

PATIENT
  Age: 52 Year
  Sex: Female
  Weight: 49.887 kg

DRUGS (4)
  1. THYROID TAB [Concomitant]
     Indication: THYROID DISORDER
     Dosage: 10 MG, DAILY
  2. PRISTIQ [Suspect]
     Indication: DEPRESSION
     Dosage: 50 MG, DAILY
  3. PRISTIQ [Suspect]
     Indication: PAIN MANAGEMENT
  4. IBUPROFEN [Concomitant]
     Indication: BACK PAIN
     Dosage: 600 MG, AS NEEDED

REACTIONS (7)
  - HEADACHE [None]
  - PALPITATIONS [None]
  - IRRITABILITY [None]
  - MEMORY IMPAIRMENT [None]
  - NAUSEA [None]
  - WITHDRAWAL SYNDROME [None]
  - MALAISE [None]
